FAERS Safety Report 13439963 (Version 11)
Quarter: 2019Q3

REPORT INFORMATION
  Report Type: Report from Study
  Country: FR (occurrence: FR)
  Receive Date: 20170413
  Receipt Date: 20190924
  Transmission Date: 20191004
  Serious: Yes (Hospitalization)
  Sender: FDA-Public Use
  Company Number: FR-ROCHE-1350844

PATIENT
  Age: 50 Year
  Sex: Male
  Weight: 54 kg

DRUGS (103)
  1. OCRELIZUMAB. [Suspect]
     Active Substance: OCRELIZUMAB
     Indication: PRIMARY PROGRESSIVE MULTIPLE SCLEROSIS
     Dosage: ON DAY 1 AND 15 OF FIRST 24 WEEK CYCLES AND THEN SINGLE INFUSION OF 600 MG FOR EACH SUBSEQUENT CYCLE
     Route: 042
     Dates: start: 20160224
  2. METHYLPREDNISOLONE. [Concomitant]
     Active Substance: METHYLPREDNISOLONE
     Route: 065
     Dates: start: 20120516, end: 20120519
  3. METHYLPREDNISOLONE. [Concomitant]
     Active Substance: METHYLPREDNISOLONE
     Route: 065
     Dates: start: 20140423, end: 20140423
  4. METHYLPREDNISOLONE. [Concomitant]
     Active Substance: METHYLPREDNISOLONE
     Route: 065
     Dates: start: 20150325, end: 20150325
  5. METHYLPREDNISOLONE. [Concomitant]
     Active Substance: METHYLPREDNISOLONE
     Route: 065
     Dates: start: 20150408, end: 20150408
  6. METHYLPREDNISOLONE. [Concomitant]
     Active Substance: METHYLPREDNISOLONE
     Route: 065
     Dates: start: 20160224, end: 20160224
  7. METHYLPREDNISOLONE. [Concomitant]
     Active Substance: METHYLPREDNISOLONE
     Route: 065
     Dates: start: 20120516, end: 20120519
  8. METHYLPREDNISOLONE. [Concomitant]
     Active Substance: METHYLPREDNISOLONE
     Dosage: SUBSEQUENT DOSES RECEIVED ON 15/MAY/2019
     Route: 065
     Dates: start: 20180613, end: 20180613
  9. PERFALGAN [Concomitant]
     Active Substance: ACETAMINOPHEN
     Route: 065
     Dates: start: 20141007, end: 20141007
  10. POLARAMINE [Concomitant]
     Active Substance: DEXCHLORPHENIRAMINE MALEATE
     Route: 065
     Dates: start: 20120704, end: 20120704
  11. POLARAMINE [Concomitant]
     Active Substance: DEXCHLORPHENIRAMINE MALEATE
     Route: 065
     Dates: start: 20121205, end: 20121205
  12. POLARAMINE [Concomitant]
     Active Substance: DEXCHLORPHENIRAMINE MALEATE
     Route: 065
     Dates: start: 20140527, end: 20140527
  13. POLARAMINE [Concomitant]
     Active Substance: DEXCHLORPHENIRAMINE MALEATE
     Route: 065
     Dates: start: 20160810, end: 20160810
  14. FRAGMINE [Concomitant]
     Active Substance: DALTEPARIN SODIUM
     Route: 065
     Dates: start: 20121213, end: 20121213
  15. HEPT-A-MYL [Concomitant]
     Active Substance: HEPTAMINOL HYDROCHLORIDE
     Indication: ORTHOSTATIC HYPOTENSION
     Route: 065
     Dates: start: 20131106
  16. COMBODART [Concomitant]
     Active Substance: DUTASTERIDE\TAMSULOSIN
     Indication: INCONTINENCE
     Route: 065
     Dates: start: 20150528, end: 20150923
  17. OCRELIZUMAB. [Suspect]
     Active Substance: OCRELIZUMAB
     Dosage: SUBSEQUENT DOSES RECEIVED ON 12/JUL/2017, 27/DEC/2017, 13/JUN/2018 AND 15/MAY/2019
     Route: 042
     Dates: start: 20170124
  18. METHYLPREDNISOLONE. [Concomitant]
     Active Substance: METHYLPREDNISOLONE
     Route: 065
     Dates: start: 20121221, end: 20121221
  19. METHYLPREDNISOLONE. [Concomitant]
     Active Substance: METHYLPREDNISOLONE
     Route: 065
     Dates: start: 20130605, end: 20130605
  20. METHYLPREDNISOLONE. [Concomitant]
     Active Substance: METHYLPREDNISOLONE
     Route: 065
     Dates: start: 20141007, end: 20141007
  21. METHYLPREDNISOLONE. [Concomitant]
     Active Substance: METHYLPREDNISOLONE
     Route: 065
     Dates: start: 20110920, end: 20110925
  22. PERFALGAN [Concomitant]
     Active Substance: ACETAMINOPHEN
     Route: 065
     Dates: start: 20150408, end: 20150408
  23. POLARAMINE [Concomitant]
     Active Substance: DEXCHLORPHENIRAMINE MALEATE
     Dosage: SAME DOSE ON  27/DEC/2017, 13/JUN/2018
     Route: 065
     Dates: start: 20170712, end: 20170712
  24. TAHOR [Concomitant]
     Active Substance: ATORVASTATIN CALCIUM
     Route: 065
     Dates: start: 20171230
  25. DRIPTANE [Concomitant]
     Active Substance: OXYBUTYNIN
     Indication: URINARY INCONTINENCE
     Route: 065
     Dates: start: 20121207, end: 20121209
  26. CORTANCYL [Concomitant]
     Active Substance: PREDNISONE
     Indication: BACK PAIN
     Route: 065
     Dates: start: 20140611, end: 20140617
  27. TOVIAZ [Concomitant]
     Active Substance: FESOTERODINE FUMARATE
     Indication: BLADDER DISORDER
     Dosage: RESTARTED ON 03/MAR/2018
     Route: 065
     Dates: start: 20160127, end: 20161219
  28. UROREC [Concomitant]
     Active Substance: SILODOSIN
     Indication: BLADDER DISORDER
     Route: 065
     Dates: start: 20161219
  29. GUTRON [Concomitant]
     Active Substance: MIDODRINE
     Indication: ORTHOSTATIC HYPOTENSION
     Route: 065
     Dates: start: 20180517
  30. OCRELIZUMAB. [Suspect]
     Active Substance: OCRELIZUMAB
     Indication: PRIMARY PROGRESSIVE MULTIPLE SCLEROSIS
     Dosage: DUAL INFUSIONS SEPARATED BY 14 DAYS IN EACH TREATMENT CYCLE OF DOUBLE BLIND TREATMENT PERIOD, PER PR
     Route: 042
     Dates: start: 20120620, end: 20160223
  31. METHYLPREDNISOLONE. [Concomitant]
     Active Substance: METHYLPREDNISOLONE
     Route: 065
     Dates: start: 20120314, end: 20120316
  32. PARACETAMOL [Concomitant]
     Active Substance: ACETAMINOPHEN
     Route: 065
     Dates: start: 20160810, end: 20160810
  33. PARACETAMOL [Concomitant]
     Active Substance: ACETAMINOPHEN
     Dosage: SAME DOSE ON  27/DEC/2017
     Route: 065
     Dates: start: 20170712, end: 20170712
  34. PERFALGAN [Concomitant]
     Active Substance: ACETAMINOPHEN
     Route: 065
     Dates: start: 20140507, end: 20140507
  35. PERFALGAN [Concomitant]
     Active Substance: ACETAMINOPHEN
     Route: 065
     Dates: start: 20141021, end: 20141021
  36. PERFALGAN [Concomitant]
     Active Substance: ACETAMINOPHEN
     Route: 065
     Dates: start: 20160224, end: 20160224
  37. POLARAMINE [Concomitant]
     Active Substance: DEXCHLORPHENIRAMINE MALEATE
     Route: 065
     Dates: start: 20121221, end: 20121221
  38. POLARAMINE [Concomitant]
     Active Substance: DEXCHLORPHENIRAMINE MALEATE
     Route: 065
     Dates: start: 20150408, end: 20150408
  39. XATRAL [ALFUZOSIN] [Concomitant]
     Indication: URINARY RETENTION
     Route: 065
     Dates: start: 20120625, end: 20131202
  40. XATRAL [ALFUZOSIN] [Concomitant]
     Route: 065
     Dates: start: 20140128, end: 20150528
  41. ATORVASTATIN [Concomitant]
     Active Substance: ATORVASTATIN
     Route: 065
     Dates: start: 20160224
  42. PARACETAMOL [Concomitant]
     Active Substance: ACETAMINOPHEN
     Indication: PYREXIA
     Route: 065
     Dates: start: 20120704, end: 20120704
  43. PERFALGAN [Concomitant]
     Active Substance: ACETAMINOPHEN
     Route: 065
     Dates: start: 20121221, end: 20121221
  44. POLARAMINE [Concomitant]
     Active Substance: DEXCHLORPHENIRAMINE MALEATE
     Route: 065
     Dates: start: 20140423, end: 20140423
  45. POLARAMINE [Concomitant]
     Active Substance: DEXCHLORPHENIRAMINE MALEATE
     Route: 065
     Dates: start: 20141007, end: 20141007
  46. POLARAMINE [Concomitant]
     Active Substance: DEXCHLORPHENIRAMINE MALEATE
     Route: 065
     Dates: start: 20150909, end: 20150909
  47. POLARAMINE [Concomitant]
     Active Substance: DEXCHLORPHENIRAMINE MALEATE
     Route: 065
     Dates: start: 20141021, end: 20141021
  48. POLARAMINE [Concomitant]
     Active Substance: DEXCHLORPHENIRAMINE MALEATE
     Route: 065
     Dates: start: 20150325, end: 20150325
  49. POLARAMINE [Concomitant]
     Active Substance: DEXCHLORPHENIRAMINE MALEATE
     Route: 065
     Dates: start: 20170124, end: 20170124
  50. DRIPTANE [Concomitant]
     Active Substance: OXYBUTYNIN
     Route: 065
     Dates: start: 20121213, end: 20121214
  51. UVEDOSE [Concomitant]
     Active Substance: CHOLECALCIFEROL
     Indication: VITAMIN D DEFICIENCY
     Route: 065
     Dates: start: 20131106, end: 20150527
  52. UVEDOSE [Concomitant]
     Active Substance: CHOLECALCIFEROL
     Route: 065
     Dates: start: 20150624, end: 20161206
  53. ULCAR [SUCRALFATE] [Concomitant]
     Indication: MULTIPLE SCLEROSIS
     Route: 065
     Dates: start: 20120516, end: 20120519
  54. ISPAGHUL [Concomitant]
     Indication: CONSTIPATION
     Dosage: 2 BAG
     Route: 065
     Dates: start: 20170712
  55. METHYLPREDNISOLONE. [Concomitant]
     Active Substance: METHYLPREDNISOLONE
     Indication: MULTIPLE SCLEROSIS
     Route: 065
     Dates: start: 20120704, end: 20120704
  56. METHYLPREDNISOLONE. [Concomitant]
     Active Substance: METHYLPREDNISOLONE
     Route: 065
     Dates: start: 20150923, end: 20150923
  57. METHYLPREDNISOLONE. [Concomitant]
     Active Substance: METHYLPREDNISOLONE
     Route: 065
     Dates: start: 20140204, end: 20140206
  58. PARACETAMOL [Concomitant]
     Active Substance: ACETAMINOPHEN
     Route: 065
     Dates: start: 20121207, end: 20121207
  59. POLARAMINE [Concomitant]
     Active Substance: DEXCHLORPHENIRAMINE MALEATE
     Indication: PREMEDICATION
     Dosage: SUBSEQUENT DOSES RECEIVED ON 15/MAY/2019
     Route: 065
     Dates: start: 20120620, end: 20120620
  60. POLARAMINE [Concomitant]
     Active Substance: DEXCHLORPHENIRAMINE MALEATE
     Route: 065
     Dates: start: 20150923, end: 20150923
  61. XATRAL [ALFUZOSIN] [Concomitant]
     Dosage: XATRAL 10 LP
     Route: 065
     Dates: start: 20150924, end: 20161219
  62. IBUPROFEN. [Concomitant]
     Active Substance: IBUPROFEN
     Indication: VIRAL INFECTION
     Route: 065
     Dates: start: 20131208, end: 20131208
  63. EDUCTYL [Concomitant]
     Active Substance: POTASSIUM BITARTRATE\SODIUM BICARBONATE
     Route: 065
     Dates: start: 20170712
  64. METHYLPREDNISOLONE. [Concomitant]
     Active Substance: METHYLPREDNISOLONE
     Route: 065
     Dates: start: 20131106, end: 20131106
  65. METHYLPREDNISOLONE. [Concomitant]
     Active Substance: METHYLPREDNISOLONE
     Route: 065
     Dates: start: 20110920, end: 20110925
  66. METHYLPREDNISOLONE. [Concomitant]
     Active Substance: METHYLPREDNISOLONE
     Route: 065
     Dates: start: 20150909, end: 20150909
  67. METHYLPREDNISOLONE. [Concomitant]
     Active Substance: METHYLPREDNISOLONE
     Dosage: SAME DOSE ON  27/DEC/2017, 13/JUN/2018
     Route: 065
     Dates: start: 20170712, end: 20170712
  68. PERFALGAN [Concomitant]
     Active Substance: ACETAMINOPHEN
     Indication: PREMEDICATION
     Dosage: SUBSEQUENT DOSES RECEIVED ON 15/MAY/2019
     Route: 065
     Dates: start: 20121205, end: 20121205
  69. PERFALGAN [Concomitant]
     Active Substance: ACETAMINOPHEN
     Route: 065
     Dates: start: 20131106, end: 20131106
  70. PERFALGAN [Concomitant]
     Active Substance: ACETAMINOPHEN
     Route: 065
     Dates: start: 20150909, end: 20150909
  71. POLARAMINE [Concomitant]
     Active Substance: DEXCHLORPHENIRAMINE MALEATE
     Route: 065
     Dates: start: 20130522, end: 20130522
  72. POLARAMINE [Concomitant]
     Active Substance: DEXCHLORPHENIRAMINE MALEATE
     Route: 065
     Dates: start: 20160224, end: 20160224
  73. FRAGMINE [Concomitant]
     Active Substance: DALTEPARIN SODIUM
     Indication: VENOUS THROMBOSIS
     Route: 065
     Dates: start: 20120512, end: 20120518
  74. VESICARE [Concomitant]
     Active Substance: SOLIFENACIN SUCCINATE
     Indication: URINARY RETENTION
     Route: 065
     Dates: start: 20120713, end: 20160518
  75. DIFFU K [Concomitant]
     Active Substance: POTASSIUM CHLORIDE
     Indication: MULTIPLE SCLEROSIS
     Route: 065
     Dates: start: 20120516, end: 20120519
  76. METHYLPREDNISOLONE. [Concomitant]
     Active Substance: METHYLPREDNISOLONE
     Indication: MULTIPLE SCLEROSIS
     Route: 065
     Dates: start: 20121205, end: 20121205
  77. METHYLPREDNISOLONE. [Concomitant]
     Active Substance: METHYLPREDNISOLONE
     Route: 065
     Dates: start: 20130522, end: 20130522
  78. METHYLPREDNISOLONE. [Concomitant]
     Active Substance: METHYLPREDNISOLONE
     Route: 065
     Dates: start: 20140204, end: 20140206
  79. METHYLPREDNISOLONE. [Concomitant]
     Active Substance: METHYLPREDNISOLONE
     Route: 065
     Dates: start: 20140507, end: 20140507
  80. METHYLPREDNISOLONE. [Concomitant]
     Active Substance: METHYLPREDNISOLONE
     Route: 065
     Dates: start: 20120314, end: 20120316
  81. PARACETAMOL [Concomitant]
     Active Substance: ACETAMINOPHEN
     Indication: PREMEDICATION
     Dosage: SUBSEQUENT DOSES RECEIVED ON 15/MAY/2019
     Route: 065
     Dates: start: 20120620, end: 20120620
  82. PARACETAMOL [Concomitant]
     Active Substance: ACETAMINOPHEN
     Route: 065
     Dates: start: 20150923, end: 20150923
  83. PERFALGAN [Concomitant]
     Active Substance: ACETAMINOPHEN
     Route: 065
     Dates: start: 20130522, end: 20130522
  84. PERFALGAN [Concomitant]
     Active Substance: ACETAMINOPHEN
     Route: 065
     Dates: start: 20130605, end: 20130605
  85. POLARAMINE [Concomitant]
     Active Substance: DEXCHLORPHENIRAMINE MALEATE
     Route: 065
     Dates: start: 20130605, end: 20130605
  86. POLARAMINE [Concomitant]
     Active Substance: DEXCHLORPHENIRAMINE MALEATE
     Route: 065
     Dates: start: 20131106, end: 20131106
  87. POLARAMINE [Concomitant]
     Active Substance: DEXCHLORPHENIRAMINE MALEATE
     Route: 065
     Dates: start: 20131120, end: 20131120
  88. POLARAMINE [Concomitant]
     Active Substance: DEXCHLORPHENIRAMINE MALEATE
     Route: 065
     Dates: start: 20140507, end: 20140507
  89. TAHOR [Concomitant]
     Active Substance: ATORVASTATIN CALCIUM
     Indication: HYPERCHOLESTEROLAEMIA
     Dosage: 1 TABLET EVENINGS
     Route: 065
     Dates: start: 2008, end: 20151210
  90. UVEDOSE [Concomitant]
     Active Substance: CHOLECALCIFEROL
     Route: 065
     Dates: start: 20150528, end: 20150623
  91. STROMECTOL [Concomitant]
     Active Substance: IVERMECTIN
     Route: 065
     Dates: start: 20140215, end: 20140215
  92. METHYLPREDNISOLONE. [Concomitant]
     Active Substance: METHYLPREDNISOLONE
     Indication: PREMEDICATION
     Route: 065
     Dates: start: 20120620, end: 20120620
  93. METHYLPREDNISOLONE. [Concomitant]
     Active Substance: METHYLPREDNISOLONE
     Route: 065
     Dates: start: 20131120, end: 20131120
  94. METHYLPREDNISOLONE. [Concomitant]
     Active Substance: METHYLPREDNISOLONE
     Route: 065
     Dates: start: 20141021, end: 20141021
  95. METHYLPREDNISOLONE. [Concomitant]
     Active Substance: METHYLPREDNISOLONE
     Route: 065
     Dates: start: 20160810, end: 20160810
  96. METHYLPREDNISOLONE. [Concomitant]
     Active Substance: METHYLPREDNISOLONE
     Route: 065
     Dates: start: 20170124, end: 20170124
  97. PARACETAMOL [Concomitant]
     Active Substance: ACETAMINOPHEN
     Route: 065
     Dates: start: 20150325, end: 20150325
  98. PARACETAMOL [Concomitant]
     Active Substance: ACETAMINOPHEN
     Route: 065
     Dates: start: 20170124, end: 20170124
  99. PERFALGAN [Concomitant]
     Active Substance: ACETAMINOPHEN
     Route: 065
     Dates: start: 20131120, end: 20131120
  100. PERFALGAN [Concomitant]
     Active Substance: ACETAMINOPHEN
     Route: 065
     Dates: start: 20140423, end: 20140423
  101. FAMPYRA [Concomitant]
     Active Substance: DALFAMPRIDINE
     Indication: GAIT DISTURBANCE
     Route: 065
     Dates: start: 20130820, end: 20131106
  102. STROMECTOL [Concomitant]
     Active Substance: IVERMECTIN
     Indication: ACARODERMATITIS
     Route: 065
     Dates: start: 20140201, end: 20140201
  103. LYRICA [Concomitant]
     Active Substance: PREGABALIN
     Indication: NEURALGIA
     Route: 065
     Dates: start: 20151002

REACTIONS (1)
  - Pruritus allergic [Unknown]

NARRATIVE: CASE EVENT DATE: 20121105
